FAERS Safety Report 14170663 (Version 2)
Quarter: 2017Q4

REPORT INFORMATION
  Report Type: Spontaneous
  Country: US (occurrence: US)
  Receive Date: 20171108
  Receipt Date: 20171206
  Transmission Date: 20180321
  Serious: Yes (Hospitalization)
  Sender: FDA-Public Use
  Company Number: US-GLAXOSMITHKLINE-US2017171032

PATIENT
  Sex: Male

DRUGS (3)
  1. ASMANEX [Concomitant]
     Active Substance: MOMETASONE FUROATE
  2. SINGULAIR [Concomitant]
     Active Substance: MONTELUKAST SODIUM
  3. VENTOLIN HFA [Suspect]
     Active Substance: ALBUTEROL SULFATE
     Indication: ASTHMA
     Dosage: UNK
     Route: 055

REACTIONS (4)
  - Chest discomfort [Recovered/Resolved]
  - Asthma [Not Recovered/Not Resolved]
  - Drug ineffective [Unknown]
  - Wrong technique in device usage process [Unknown]
